FAERS Safety Report 5177193-4 (Version None)
Quarter: 2006Q4

REPORT INFORMATION
  Report Type: 
  Country: None (occurrence: None)
  Receive Date: 20061218
  Receipt Date: 20061206
  Transmission Date: 20070319
  Serious: Yes (Hospitalization)
  Sender: FDA-Public Use
  Company Number: US-BRISTOL-MYERS SQUIBB COMPANY-13611058

PATIENT
  Age: 72 Year
  Sex: Male

DRUGS (5)
  1. ERBITUX [Suspect]
     Indication: COLORECTAL CANCER
     Route: 042
     Dates: start: 20060426, end: 20060426
  2. OXALIPLATIN [Suspect]
     Dates: start: 20060426, end: 20060426
  3. KYTRIL [Concomitant]
     Indication: PREMEDICATION
     Route: 042
     Dates: start: 20060426, end: 20060426
  4. BENADRYL [Concomitant]
     Indication: PREMEDICATION
     Route: 042
     Dates: start: 20060426, end: 20060426
  5. DECADRON [Concomitant]
     Indication: PREMEDICATION
     Route: 042
     Dates: start: 20060426, end: 20060426

REACTIONS (4)
  - DYSPNOEA [None]
  - FAECAL INCONTINENCE [None]
  - FALL [None]
  - URINARY INCONTINENCE [None]
